FAERS Safety Report 13496368 (Version 3)
Quarter: 2022Q1

REPORT INFORMATION
  Report Type: Spontaneous
  Country: FR (occurrence: FR)
  Receive Date: 20170428
  Receipt Date: 20220120
  Transmission Date: 20220424
  Serious: Yes (Hospitalization, Disabling, Congenital Anomaly, Other)
  Sender: FDA-Public Use
  Company Number: FR-ABBVIE-17P-056-1958020-00

PATIENT
  Sex: Female

DRUGS (1)
  1. VALPROATE SODIUM [Suspect]
     Active Substance: VALPROATE SODIUM
     Indication: Maternal exposure timing unspecified
     Route: 064

REACTIONS (15)
  - Hypotonia [Recovering/Resolving]
  - Congenital central nervous system anomaly [Unknown]
  - Behaviour disorder [Unknown]
  - Neuropathic muscular atrophy [Unknown]
  - Psychomotor retardation [Not Recovered/Not Resolved]
  - Sleep disorder [Recovering/Resolving]
  - Disabled relative [Unknown]
  - Foetal exposure during pregnancy [Unknown]
  - Low set ears [Unknown]
  - Anomaly of external ear congenital [Unknown]
  - Loss of personal independence in daily activities [Unknown]
  - Scoliosis [Unknown]
  - Lordosis [Unknown]
  - Foot deformity [Unknown]
  - Hypertonia [Unknown]

NARRATIVE: CASE EVENT DATE: 20100101
